FAERS Safety Report 4636726-4 (Version None)
Quarter: 2005Q2

REPORT INFORMATION
  Report Type: 
  Country: None (occurrence: None)
  Receive Date: 20050414
  Receipt Date: 20050407
  Transmission Date: 20051028
  Serious: Yes (Hospitalization)
  Sender: FDA-Public Use
  Company Number: 2005-01180

PATIENT
  Age: 79 Year
  Sex: Male

DRUGS (7)
  1. PREDNISONE [Suspect]
     Indication: ARTHRITIS
     Dosage: SEE IMAGE
     Route: 048
     Dates: start: 20050307, end: 20050309
  2. PREDNISONE [Suspect]
     Indication: ARTHRITIS
     Dosage: SEE IMAGE
     Route: 048
     Dates: start: 20050310, end: 20050312
  3. PREDNISONE [Suspect]
     Indication: ARTHRITIS
     Dosage: SEE IMAGE
     Route: 048
     Dates: start: 20050313, end: 20050315
  4. ATENOLOL W/CHLORTALIDONE [Concomitant]
  5. POTASSIUM ACETATE [Concomitant]
  6. PROSCAR [Concomitant]
  7. ZOCOR [Concomitant]

REACTIONS (3)
  - CONDUCTION DISORDER [None]
  - HYPOKALAEMIA [None]
  - SUPRAVENTRICULAR TACHYCARDIA [None]
